FAERS Safety Report 21908111 (Version 1)
Quarter: 2023Q1

REPORT INFORMATION
  Report Type: Spontaneous
  Country: RU (occurrence: RU)
  Receive Date: 20230125
  Receipt Date: 20230125
  Transmission Date: 20230417
  Serious: Yes (Other)
  Sender: FDA-Public Use
  Company Number: RU-drreddys-LIT/RUS/23/0160314

PATIENT
  Age: 64 Year
  Sex: Male

DRUGS (12)
  1. OMEPRAZOLE [Suspect]
     Active Substance: OMEPRAZOLE
     Indication: Acute myocardial infarction
  2. OMEPRAZOLE [Suspect]
     Active Substance: OMEPRAZOLE
     Indication: Cardiogenic shock
  3. ATORVASTATIN [Suspect]
     Active Substance: ATORVASTATIN
     Indication: Acute myocardial infarction
  4. ATORVASTATIN [Suspect]
     Active Substance: ATORVASTATIN
     Indication: Cardiogenic shock
  5. BISOPROLOL [Suspect]
     Active Substance: BISOPROLOL
     Indication: Acute myocardial infarction
  6. BISOPROLOL [Suspect]
     Active Substance: BISOPROLOL
     Indication: Cardiogenic shock
  7. ASPIRIN [Suspect]
     Active Substance: ASPIRIN
     Indication: Acute myocardial infarction
  8. ASPIRIN [Suspect]
     Active Substance: ASPIRIN
     Indication: Cardiogenic shock
  9. NADROPARIN CALCIUM [Suspect]
     Active Substance: NADROPARIN CALCIUM
     Indication: Acute myocardial infarction
  10. NADROPARIN CALCIUM [Suspect]
     Active Substance: NADROPARIN CALCIUM
     Indication: Cardiogenic shock
  11. AMIODARONE HYDROCHLORIDE [Suspect]
     Active Substance: AMIODARONE HYDROCHLORIDE
     Indication: Acute myocardial infarction
  12. AMIODARONE HYDROCHLORIDE [Suspect]
     Active Substance: AMIODARONE HYDROCHLORIDE
     Indication: Cardiogenic shock

REACTIONS (2)
  - Ventricular tachycardia [Recovering/Resolving]
  - Drug ineffective for unapproved indication [Unknown]
